FAERS Safety Report 24220517 (Version 1)
Quarter: 2024Q3

REPORT INFORMATION
  Report Type: Spontaneous
  Country: IT (occurrence: IT)
  Receive Date: 20240818
  Receipt Date: 20240818
  Transmission Date: 20241016
  Serious: Yes (Other)
  Sender: AUROBINDO
  Company Number: IT-JNJFOC-20240782108

PATIENT
  Age: 33 Year
  Sex: Female
  Weight: 90 kg

DRUGS (4)
  1. DIAZEPAM [Suspect]
     Active Substance: DIAZEPAM
     Indication: Product used for unknown indication
     Dosage: 5 MILLIGRAM (FN*20CRIV)
     Route: 065
  2. ABSTRAL [Suspect]
     Active Substance: FENTANYL CITRATE
     Indication: Product used for unknown indication
     Dosage: 100 MICROGRAM (10 CPR SUBL)
     Route: 065
  3. FENTANYL [Suspect]
     Active Substance: FENTANYL\FENTANYL CITRATE
     Indication: Product used for unknown indication
     Dosage: 100 MICROGRAM/HOUR
     Route: 065
  4. FENTANYL [Suspect]
     Active Substance: FENTANYL\FENTANYL CITRATE
     Indication: Product used for unknown indication
     Dosage: 100 MICROGRAM/HOUR (3 TRANSDERMAL PATCHES)
     Route: 065

REACTIONS (4)
  - Coma [Unknown]
  - Respiratory failure [Unknown]
  - Self-destructive behaviour [Unknown]
  - Intentional product misuse [Unknown]
